FAERS Safety Report 9364893 (Version 2)
Quarter: 2013Q3

REPORT INFORMATION
  Report Type: Spontaneous
  Country: JP (occurrence: JP)
  Receive Date: 20130624
  Receipt Date: 20130701
  Transmission Date: 20140515
  Serious: Yes (Hospitalization)
  Sender: FDA-Public Use
  Company Number: JP-GLAXOSMITHKLINE-B0899734A

PATIENT
  Age: 72 Year
  Sex: Male
  Weight: 65 kg

DRUGS (13)
  1. VOTRIENT [Suspect]
     Indication: PROSTATE CANCER
     Dosage: 800MG PER DAY
     Route: 048
     Dates: start: 20130517, end: 20130528
  2. VOTRIENT [Suspect]
     Indication: PROSTATE CANCER
     Dosage: 600MG PER DAY
     Route: 048
     Dates: start: 20130529, end: 20130603
  3. VOTRIENT [Suspect]
     Indication: PROSTATE CANCER
     Dosage: 400MG PER DAY
     Route: 048
     Dates: start: 20130604
  4. DEPAS [Concomitant]
     Route: 048
  5. TETRAMIDE [Concomitant]
     Route: 048
  6. ROZEREM [Concomitant]
     Route: 048
  7. RHYTHMY [Concomitant]
     Route: 048
  8. AMOBAN [Concomitant]
     Route: 048
  9. GLIMEPIRIDE [Concomitant]
     Route: 048
  10. JANUVIA [Concomitant]
     Route: 048
  11. LEVEMIR [Concomitant]
     Route: 058
  12. PROMAC [Concomitant]
     Route: 048
  13. UREPEARL [Concomitant]
     Route: 061

REACTIONS (2)
  - Dysphonia [Not Recovered/Not Resolved]
  - Platelet count decreased [Recovered/Resolved]
